FAERS Safety Report 7245166-3 (Version None)
Quarter: 2011Q1

REPORT INFORMATION
  Report Type: 
  Country: None (occurrence: None)
  Receive Date: 20110126
  Receipt Date: 20110114
  Transmission Date: 20110831
  Serious: Yes (Other)
  Sender: FDA-Public Use
  Company Number: ZA-SANOFI-AVENTIS-2011SA002592

PATIENT
  Age: 50 Year
  Sex: Female
  Weight: 65.1 kg

DRUGS (9)
  1. GLIBENCLAMIDE [Concomitant]
     Route: 048
     Dates: start: 20080101
  2. PHARMAPRESS [Concomitant]
     Route: 048
     Dates: start: 20101126
  3. RIFAMPICIN [Suspect]
     Indication: PULMONARY TUBERCULOSIS
     Dates: start: 20101022
  4. PYRAZINAMIDE [Suspect]
     Indication: PULMONARY TUBERCULOSIS
     Dates: start: 20101022
  5. ETHAMBUTOL HYDROCHLORIDE [Suspect]
     Indication: PULMONARY TUBERCULOSIS
     Dates: start: 20101022
  6. MOXIFLOXACIN [Suspect]
     Indication: PULMONARY TUBERCULOSIS
     Dates: start: 20101022
  7. ADALAT CC [Concomitant]
     Route: 048
     Dates: start: 20080101
  8. ISONIAZID [Suspect]
     Indication: PULMONARY TUBERCULOSIS
     Route: 048
     Dates: start: 20101022
  9. ASPIRIN [Concomitant]
     Route: 048
     Dates: start: 20101120

REACTIONS (1)
  - VISUAL ACUITY REDUCED [None]
